FAERS Safety Report 17599312 (Version 3)
Quarter: 2020Q4

REPORT INFORMATION
  Report Type: Spontaneous
  Country: CO (occurrence: CO)
  Receive Date: 20200330
  Receipt Date: 20201103
  Transmission Date: 20210113
  Serious: Yes (Hospitalization)
  Sender: FDA-Public Use
  Company Number: CO-EMD SERONO-9153753

PATIENT
  Age: 64 Year
  Sex: Female

DRUGS (6)
  1. OMEPRAZOLE. [Concomitant]
     Active Substance: OMEPRAZOLE
     Indication: PRODUCT USED FOR UNKNOWN INDICATION
  2. LOSARTAN. [Suspect]
     Active Substance: LOSARTAN
     Indication: HYPERTENSION
     Route: 048
  3. METFORMIN [Suspect]
     Active Substance: METFORMIN HYDROCHLORIDE
     Indication: DIABETES MELLITUS
     Route: 048
  4. LOSARTAN. [Suspect]
     Active Substance: LOSARTAN
     Route: 048
  5. TASIGNA [Suspect]
     Active Substance: NILOTINIB
     Route: 048
     Dates: end: 2019
  6. TASIGNA [Suspect]
     Active Substance: NILOTINIB
     Indication: CHRONIC MYELOID LEUKAEMIA
     Route: 048
     Dates: start: 2016

REACTIONS (8)
  - Pneumonia [Unknown]
  - Effusion [Unknown]
  - Chronic myeloid leukaemia recurrent [Unknown]
  - Eating disorder [Unknown]
  - Depressed mood [Unknown]
  - Platelet count decreased [Recovered/Resolved]
  - Asthenia [Unknown]
  - Malaise [Unknown]
